FAERS Safety Report 5491811-2 (Version None)
Quarter: 2007Q4

REPORT INFORMATION
  Report Type: 
  Country: None (occurrence: None)
  Receive Date: 20071022
  Receipt Date: 20071016
  Transmission Date: 20080405
  Serious: Yes (Death)
  Sender: FDA-Public Use
  Company Number: GB-BRISTOL-MYERS SQUIBB COMPANY-13943030

PATIENT

DRUGS (7)
  1. ETOPOSIDE [Suspect]
     Indication: GERM CELL CANCER
  2. CISPLATIN [Suspect]
     Indication: GERM CELL CANCER
  3. CARBOPLATIN [Suspect]
  4. METHOTREXATE [Suspect]
     Indication: GERM CELL CANCER
  5. DACTINOMYCIN [Suspect]
     Indication: GERM CELL CANCER
  6. NEUPOGEN [Suspect]
  7. FOLINIC ACID [Suspect]

REACTIONS (1)
  - SEPSIS [None]
